FAERS Safety Report 5470959-2 (Version None)
Quarter: 2007Q3

REPORT INFORMATION
  Report Type: 
  Country: None (occurrence: None)
  Receive Date: 20070928
  Receipt Date: 20070917
  Transmission Date: 20080115
  Serious: Yes (Hospitalization, Other)
  Sender: FDA-Public Use
  Company Number: US-ROCHE-519034

PATIENT
  Age: 68 Year
  Sex: Female

DRUGS (3)
  1. BONIVA [Suspect]
     Indication: DRUG USE FOR UNKNOWN INDICATION
     Dosage: THE PATIENT RECEIVED IV BONIVA.
     Route: 042
  2. OXYGEN [Concomitant]
     Dosage: THE PATIENT WAS ON CONTINUOUS OXYGEN.
  3. UNSPECIFIED MEDICATIONS [Concomitant]

REACTIONS (4)
  - BRONCHOSPASM [None]
  - BURNING SENSATION [None]
  - CARDIAC ARREST [None]
  - RESPIRATORY ARREST [None]
